FAERS Safety Report 20216080 (Version 1)
Quarter: 2021Q4

REPORT INFORMATION
  Report Type: Spontaneous
  Country: EG (occurrence: EG)
  Receive Date: 20211222
  Receipt Date: 20211222
  Transmission Date: 20220303
  Serious: Yes (Other)
  Sender: FDA-Public Use
  Company Number: EG-NOVARTISPH-NVSC2021EG287331

PATIENT
  Sex: Female

DRUGS (3)
  1. METHOTREXATE [Suspect]
     Active Substance: METHOTREXATE
     Indication: Psoriasis
     Dosage: 10 ML, QW (1CM WEEKLY AS PER THE REPORTER) METHOTREXATE 0.5 CM WEEKLY ACCORDING TO SEVERITY OF SYMPT
     Route: 058
     Dates: start: 2020, end: 202108
  2. COSENTYX [Concomitant]
     Active Substance: SECUKINUMAB
     Indication: Psoriasis
     Dosage: 2 PREFILLED PENS EVERY 15 DAYS (6 PREFILLED PENS DURING THE 1ST MONTH) THEN STARTING FROM 2ND MONTH
     Route: 065
     Dates: start: 20180319, end: 2020
  3. SIMPONI [Concomitant]
     Active Substance: GOLIMUMAB
     Indication: Psoriasis
     Dosage: INJECTION ONCE PER MONTH FOR A DURATION OF 3 MONTHS (ONLY 3 DOSES WERE ADMINISTERED)
     Route: 065
     Dates: start: 20210905, end: 20211105

REACTIONS (8)
  - Psoriasis [Not Recovered/Not Resolved]
  - Immunodeficiency [Not Recovered/Not Resolved]
  - Hepatic enzyme increased [Recovered/Resolved]
  - Inflammation [Not Recovered/Not Resolved]
  - Fatigue [Not Recovered/Not Resolved]
  - Muscle spasms [Not Recovered/Not Resolved]
  - Injury [Not Recovered/Not Resolved]
  - Product dispensing error [Recovered/Resolved]

NARRATIVE: CASE EVENT DATE: 20200101
